FAERS Safety Report 11569661 (Version 1)
Quarter: 2015Q3

REPORT INFORMATION
  Report Type: Spontaneous
  Country: US (occurrence: US)
  Receive Date: 20150929
  Receipt Date: 20150929
  Transmission Date: 20151125
  Serious: No
  Sender: FDA-Public Use
  Company Number: US-SHIONOGI, INC-2015000672

PATIENT
  Age: 58 Year
  Sex: Female

DRUGS (1)
  1. OSPHENA [Suspect]
     Active Substance: OSPEMIFENE
     Indication: DYSPAREUNIA
     Dosage: UNK
     Route: 065
     Dates: start: 20150521

REACTIONS (10)
  - Headache [Unknown]
  - Vaginal discharge [Unknown]
  - Myalgia [Unknown]
  - Pain in extremity [Unknown]
  - Sleep disorder [Unknown]
  - Labelled drug-drug interaction medication error [Unknown]
  - Arthralgia [Unknown]
  - Paraesthesia [Unknown]
  - Anxiety [Unknown]
  - Hot flush [Unknown]
